FAERS Safety Report 4608595-X (Version None)
Quarter: 2005Q1

REPORT INFORMATION
  Report Type: 
  Country: None (occurrence: None)
  Receive Date: 20050315
  Receipt Date: 20050308
  Transmission Date: 20050727
  Serious: Yes (Hospitalization)
  Sender: FDA-Public Use
  Company Number: US-JNJFOC-20050302483

PATIENT
  Sex: Female
  Weight: 73.03 kg

DRUGS (9)
  1. DURAGESIC-100 [Suspect]
     Route: 062
  2. DURAGESIC-100 [Suspect]
     Route: 062
  3. DURAGESIC-100 [Suspect]
     Route: 062
  4. FENTANYL [Suspect]
     Route: 062
     Dates: start: 20050221
  5. COUMADIN [Concomitant]
     Indication: ANTICOAGULANT THERAPY
     Route: 049
     Dates: start: 20040621
  6. ACTIQ [Concomitant]
     Route: 049
     Dates: start: 20050101
  7. TOPROL-XL [Concomitant]
     Indication: HYPERTENSION
     Route: 049
     Dates: start: 20020101
  8. LIPITOR [Concomitant]
     Route: 049
     Dates: start: 20040101
  9. ZESTRIL [Concomitant]
     Route: 049
     Dates: start: 20030101

REACTIONS (8)
  - ANOREXIA [None]
  - ANXIETY [None]
  - CHILLS [None]
  - CONSTIPATION [None]
  - FATIGUE [None]
  - FEELING ABNORMAL [None]
  - HYPERHIDROSIS [None]
  - WEIGHT DECREASED [None]
